FAERS Safety Report 7768568-5 (Version None)
Quarter: 2011Q3

REPORT INFORMATION
  Report Type: 
  Country: None (occurrence: None)
  Receive Date: 20110922
  Receipt Date: 20101108
  Transmission Date: 20111222
  Serious: No
  Sender: FDA-Public Use
  Company Number: US-ASTRAZENECA-2010SE52903

PATIENT
  Sex: Male
  Weight: 77.1 kg

DRUGS (2)
  1. SEROQUEL XR [Suspect]
     Route: 048
  2. VELAXAFINE HCL XR [Concomitant]

REACTIONS (3)
  - PARAESTHESIA [None]
  - MYALGIA [None]
  - ARTHRALGIA [None]
